FAERS Safety Report 15820335 (Version 1)
Quarter: 2019Q1

REPORT INFORMATION
  Report Type: Spontaneous
  Country: US (occurrence: US)
  Receive Date: 20190114
  Receipt Date: 20190114
  Transmission Date: 20190417
  Serious: Yes (Other)
  Sender: FDA-Public Use
  Company Number: US-ALKERMES INC.-ALK-2019-000167

PATIENT
  Age: 23 Year
  Sex: Male

DRUGS (1)
  1. ARISTADA [Suspect]
     Active Substance: ARIPIPRAZOLE LAUROXIL
     Indication: EPILEPSY
     Dosage: UNK
     Route: 030

REACTIONS (3)
  - Seizure [Unknown]
  - Insomnia [Unknown]
  - Off label use [Recovered/Resolved]
